FAERS Safety Report 7432350-9 (Version None)
Quarter: 2011Q2

REPORT INFORMATION
  Report Type: 
  Country: None (occurrence: None)
  Receive Date: 20110422
  Receipt Date: 20080214
  Transmission Date: 20111010
  Serious: Yes (Other)
  Sender: FDA-Public Use
  Company Number: PHHY2008MX37384

PATIENT
  Age: 63 Year
  Sex: Female

DRUGS (2)
  1. CO-DIOVAN [Suspect]
     Indication: HYPERTENSION
     Dosage: 1 DF, QD
     Route: 048
     Dates: start: 20040901
  2. CITRACAL [Concomitant]
     Dosage: MORE THAN 2 TABLETS PER DAY.

REACTIONS (3)
  - HUMERUS FRACTURE [None]
  - LIMB INJURY [None]
  - FALL [None]
